FAERS Safety Report 4900315-4 (Version None)
Quarter: 2006Q1

REPORT INFORMATION
  Report Type: 
  Country: None (occurrence: None)
  Receive Date: 20060203
  Receipt Date: 20051219
  Transmission Date: 20060701
  Serious: Yes (Other)
  Sender: FDA-Public Use
  Company Number: US-GLAXOSMITHKLINE-A0586300A

PATIENT
  Age: 5 Month
  Sex: Female

DRUGS (2)
  1. CEFTIN [Suspect]
     Indication: DRUG USE FOR UNKNOWN INDICATION
     Dosage: 1ML TWICE PER DAY
     Route: 048
     Dates: start: 20051215
  2. ZANTAC [Concomitant]
     Dosage: 1ML TWICE PER DAY
     Route: 048

REACTIONS (7)
  - ABDOMINAL PAIN UPPER [None]
  - CRYING [None]
  - FLATULENCE [None]
  - GASTROENTERITIS [None]
  - HAEMATOCHEZIA [None]
  - IRRITABILITY [None]
  - PHARMACEUTICAL PRODUCT COMPLAINT [None]
